FAERS Safety Report 5263892-2 (Version None)
Quarter: 2007Q1

REPORT INFORMATION
  Report Type: 
  Country: None (occurrence: None)
  Receive Date: 20061213
  Receipt Date: 20041223
  Transmission Date: 20070707
  Serious: Yes (Other)
  Sender: FDA-Public Use
  Company Number: 2004UW19582

PATIENT
  Age: 77 Year
  Sex: Female
  Weight: 71.6683 kg

DRUGS (5)
  1. IRESSA [Suspect]
     Indication: NON-SMALL CELL LUNG CANCER
     Dosage: 250 MG QD PO
     Route: 048
     Dates: start: 20031001
  2. IRESSA [Suspect]
     Indication: NON-SMALL CELL LUNG CANCER
     Dates: start: 20041101
  3. CELEBREX [Concomitant]
  4. VIVAXINE [Concomitant]
  5. BIAXIN [Concomitant]

REACTIONS (2)
  - DISEASE PROGRESSION [None]
  - IRON DEFICIENCY ANAEMIA [None]
